FAERS Safety Report 8772144 (Version 2)
Quarter: 2012Q4

REPORT INFORMATION
  Report Type: 
  Country: AU (occurrence: AU)
  Receive Date: 20120905
  Receipt Date: 20121107
  Transmission Date: 20130627
  Serious: Yes (Hospitalization, Disabling)
  Sender: FDA-Public Use
  Company Number: AU-CELGENEUS-008-50794-12082564

PATIENT
  Age: 52 Year
  Sex: Female

DRUGS (4)
  1. VIDAZA [Suspect]
     Indication: RAEB
     Dosage: 135 Milligram
     Route: 058
     Dates: start: 20120620, end: 20120628
  2. VIDAZA [Suspect]
     Dosage: 135 Milligram
     Route: 065
     Dates: start: 20120719, end: 20120727
  3. MAXOLON [Concomitant]
     Indication: NAUSEA
     Route: 065
     Dates: start: 20120620, end: 20120628
  4. MAXOLON [Concomitant]
     Route: 065
     Dates: start: 20120719, end: 20120727

REACTIONS (3)
  - Injection site reaction [Recovering/Resolving]
  - Pyoderma gangrenosum [Not Recovered/Not Resolved]
  - Systemic inflammatory response syndrome [Not Recovered/Not Resolved]
